FAERS Safety Report 25766509 (Version 1)
Quarter: 2025Q3

REPORT INFORMATION
  Report Type: Spontaneous
  Country: US (occurrence: None)
  Receive Date: 20250903
  Receipt Date: 20250903
  Transmission Date: 20251020
  Serious: Yes (Hospitalization)
  Sender: FDA-CTU
  Company Number: None

PATIENT
  Age: 69 Year
  Sex: Female
  Weight: 71.1 kg

DRUGS (9)
  1. METOPROLOL TARTRATE [Suspect]
     Active Substance: METOPROLOL TARTRATE
     Indication: Myocardial infarction
     Dosage: 0.5 TABLET(S) DAILY ORAL
     Route: 048
     Dates: start: 20250716, end: 20250721
  2. INSULIN NOS [Concomitant]
     Active Substance: INSULIN NOS
  3. UNSPECIFIED INGREDIENT [Concomitant]
     Active Substance: UNSPECIFIED INGREDIENT
  4. MINERALS [Concomitant]
     Active Substance: MINERALS
  5. HERBALS\TURMERIC [Concomitant]
     Active Substance: HERBALS\TURMERIC
  6. collegen [Concomitant]
  7. UNSPECIFIED INGREDIENT [Concomitant]
     Active Substance: UNSPECIFIED INGREDIENT
  8. VITAMIN C [Concomitant]
     Active Substance: ASCORBIC ACID
  9. VITAMIN D NOS [Concomitant]
     Active Substance: CHOLECALCIFEROL\ERGOCALCIFEROL

REACTIONS (21)
  - Abdominal discomfort [None]
  - Peripheral swelling [None]
  - Vision blurred [None]
  - Hyperhidrosis [None]
  - Abdominal distension [None]
  - Urine output decreased [None]
  - Dyspnoea [None]
  - Speech disorder [None]
  - Skin discolouration [None]
  - Weight increased [None]
  - Mobility decreased [None]
  - Oropharyngeal pain [None]
  - Bowel movement irregularity [None]
  - Depressed mood [None]
  - Nightmare [None]
  - Fatigue [None]
  - Insomnia [None]
  - Conjunctivitis [None]
  - Loss of consciousness [None]
  - Loss of consciousness [None]
  - Cough [None]

NARRATIVE: CASE EVENT DATE: 20250720
